FAERS Safety Report 7009155-6 (Version None)
Quarter: 2010Q3

REPORT INFORMATION
  Report Type: 
  Country: None (occurrence: None)
  Receive Date: 20100923
  Receipt Date: 20100915
  Transmission Date: 20110219
  Serious: Yes (Hospitalization)
  Sender: FDA-Public Use
  Company Number: US-JNJFOC-20100905428

PATIENT
  Sex: Female
  Weight: 136.08 kg

DRUGS (5)
  1. FENTANYL CITRATE [Suspect]
     Indication: POLYNEUROPATHY CHRONIC
     Route: 062
  2. TEGRETOL [Concomitant]
     Indication: CONVULSION
     Route: 048
  3. UNSPECIFIED SEIZURE MEDICATIONS [Concomitant]
     Indication: CONVULSION
     Route: 048
  4. PREDNISONE [Concomitant]
     Indication: SYSTEMIC LUPUS ERYTHEMATOSUS
     Route: 065
  5. PLAQUENIL [Concomitant]
     Indication: SYSTEMIC LUPUS ERYTHEMATOSUS
     Route: 048

REACTIONS (3)
  - ADVERSE DRUG REACTION [None]
  - DYSPNOEA [None]
  - UNRESPONSIVE TO STIMULI [None]
